FAERS Safety Report 11568998 (Version 1)
Quarter: 2015Q3

REPORT INFORMATION
  Report Type: Spontaneous
  Country: US (occurrence: US)
  Receive Date: 20150929
  Receipt Date: 20150929
  Transmission Date: 20151125
  Serious: No
  Sender: FDA-Public Use
  Company Number: US-BAYER-2015-431992

PATIENT
  Age: 89 Year
  Sex: Female
  Weight: 58.96 kg

DRUGS (8)
  1. LIPANOR [Concomitant]
     Active Substance: CIPROFIBRATE
  2. NORVASC [Concomitant]
     Active Substance: AMLODIPINE BESYLATE
  3. COZAAR [Concomitant]
     Active Substance: LOSARTAN POTASSIUM
  4. MIRALAX [Suspect]
     Active Substance: POLYETHYLENE GLYCOL 3350
     Indication: CONSTIPATION
     Dosage: 1 DF, QD
     Route: 048
     Dates: end: 20150923
  5. SYNTHROID [Concomitant]
     Active Substance: LEVOTHYROXINE SODIUM
  6. ZOLOFT [Concomitant]
     Active Substance: SERTRALINE HYDROCHLORIDE
  7. XARELTO [Concomitant]
     Active Substance: RIVAROXABAN
  8. ATENOLOL. [Concomitant]
     Active Substance: ATENOLOL

REACTIONS (2)
  - Faeces soft [None]
  - Product use issue [None]
